FAERS Safety Report 18107649 (Version 1)
Quarter: 2020Q3

REPORT INFORMATION
  Report Type: Spontaneous
  Country: CN (occurrence: CN)
  Receive Date: 20200803
  Receipt Date: 20200803
  Transmission Date: 20201103
  Serious: Yes (Disabling)
  Sender: FDA-Public Use
  Company Number: CN-PFIZER INC-2020292908

PATIENT
  Age: 53 Year
  Sex: Female
  Weight: 70 kg

DRUGS (5)
  1. CIMETIDINE [Suspect]
     Active Substance: CIMETIDINE
     Indication: CEREBRAL HAEMORRHAGE
     Dosage: 0.6 G, 1X/DAY
     Route: 041
     Dates: start: 20200714, end: 20200727
  2. PIRACETAM AND SODIUM CHLORIDE [Concomitant]
     Indication: CEREBRAL HAEMORRHAGE
     Dosage: 100 ML, 2X/DAY
     Route: 041
     Dates: start: 20200712, end: 20200723
  3. NORVASC [Suspect]
     Active Substance: AMLODIPINE BESYLATE
     Indication: HYPERTENSION
     Dosage: 5 MG, 1X/DAY
     Route: 048
     Dates: start: 20200712, end: 20200730
  4. HYZAAR [Suspect]
     Active Substance: HYDROCHLOROTHIAZIDE\LOSARTAN POTASSIUM
     Indication: HYPERTENSION
     Dosage: 1 DF, 1X/DAY
     Route: 048
     Dates: start: 20200712, end: 20200730
  5. MANNITOL. [Concomitant]
     Active Substance: MANNITOL
     Indication: CEREBRAL HAEMORRHAGE
     Dosage: 150 ML, 2X/DAY
     Route: 041
     Dates: start: 20200712, end: 20200727

REACTIONS (2)
  - White blood cell count decreased [Recovering/Resolving]
  - Hepatic failure [Recovering/Resolving]

NARRATIVE: CASE EVENT DATE: 20200727
